FAERS Safety Report 20925192 (Version 2)
Quarter: 2022Q3

REPORT INFORMATION
  Report Type: Report from Study
  Country: ES (occurrence: ES)
  Receive Date: 20220607
  Receipt Date: 20220819
  Transmission Date: 20221027
  Serious: Yes (Hospitalization)
  Sender: FDA-Public Use
  Company Number: ES-PFIZER INC-202200787689

PATIENT
  Age: 65 Year
  Sex: Male
  Weight: 63.1 kg

DRUGS (13)
  1. IRINOTECAN HYDROCHLORIDE [Suspect]
     Active Substance: IRINOTECAN HYDROCHLORIDE
     Indication: Pancreatic carcinoma
     Dosage: 150 MG/M2, 1 IN 2 WK, DAYS 1 AND 15 OF EACH 28 DAY CYCLE
     Route: 042
     Dates: start: 20220425, end: 20220509
  2. OXALIPLATIN [Suspect]
     Active Substance: OXALIPLATIN
     Indication: Pancreatic carcinoma
     Dosage: 85 UG/KG, 1 IN 2 WK, DAYS 1 AND 15 OF EACH 28 DAY CYCLE
     Route: 042
     Dates: start: 20220425, end: 20220509
  3. FLUOROURACIL [Suspect]
     Active Substance: FLUOROURACIL
     Indication: Pancreatic carcinoma
     Dosage: 2400 MG/M2, 1 IN 2 WK, DAYS 1 AND 15 OF EACH 28 DAY CYCLE
     Route: 042
     Dates: start: 20220425, end: 20220509
  4. LEUCOVORIN [Suspect]
     Active Substance: LEUCOVORIN
     Indication: Pancreatic carcinoma
     Dosage: 400 MG/M2, 1 IN 2 WK, DAYS 1 AND 15 OF EACH 28 DAY CYCLE
     Route: 042
     Dates: start: 20220425, end: 20220509
  5. GILORALIMAB [Suspect]
     Active Substance: GILORALIMAB
     Indication: Pancreatic carcinoma
     Dosage: 0.1 MG/KG, 1 IN 4 WK, DAY 3 OF EACH 28 DAY CYCLE
     Route: 042
     Dates: start: 20220427, end: 20220427
  6. BUDIGALIMAB [Suspect]
     Active Substance: BUDIGALIMAB
     Indication: Pancreatic carcinoma
     Dosage: 500 MG, 1 IN 4 WK, DAY 3 OF EACH 28 DAY CYCLE
     Route: 042
     Dates: start: 20220427, end: 20220427
  7. ESOMEPRAZOLE [Concomitant]
     Active Substance: ESOMEPRAZOLE
     Indication: Prophylaxis
     Dosage: 40 MG, 1 IN 1 D
     Route: 048
     Dates: start: 20220420
  8. ATORVASTATIN [Concomitant]
     Active Substance: ATORVASTATIN
     Indication: Dyslipidaemia
     Dosage: 20 MG, 1 IN 1 D
     Route: 048
     Dates: start: 20220420
  9. LANTUS [Concomitant]
     Active Substance: INSULIN GLARGINE
     Indication: Diabetes mellitus
     Dosage: 14 IU, 1 IN 1 D
     Route: 058
     Dates: start: 20220420
  10. PANCRELIPASE [Concomitant]
     Active Substance: PANCRELIPASE
     Indication: Pancreatic failure
     Dosage: 100000 IU, 1 IN 6 HR
     Route: 048
     Dates: start: 20220420
  11. VITAMIN D NOS [Concomitant]
     Active Substance: VITAMIN D NOS
     Indication: Osteoporosis prophylaxis
     Dosage: 1 TABLET, 1 IN 1 D
     Route: 048
     Dates: start: 20220420
  12. METFORMIN [Concomitant]
     Active Substance: METFORMIN HYDROCHLORIDE
     Indication: Diabetes mellitus
     Dosage: 850 MG, 2X/DAY (1700MG)
     Route: 048
     Dates: start: 20220420
  13. FERROUS SULFATE [Concomitant]
     Active Substance: FERROUS SULFATE
     Indication: Anaemia
     Dosage: 1 TABLET, 1 IN 1 D
     Route: 048
     Dates: start: 20220422

REACTIONS (1)
  - Febrile neutropenia [Recovered/Resolved]

NARRATIVE: CASE EVENT DATE: 20220518
